FAERS Safety Report 11392817 (Version 1)
Quarter: 2015Q3

REPORT INFORMATION
  Report Type: Report from Study
  Country: US (occurrence: US)
  Receive Date: 20150818
  Receipt Date: 20150818
  Transmission Date: 20151125
  Serious: Yes (Hospitalization)
  Sender: FDA-Public Use
  Company Number: US-MALLINCKRODT-T201503813

PATIENT
  Age: 55 Year
  Sex: Male

DRUGS (1)
  1. REPOSITORY CORTICOTROPIN INJECTION [Suspect]
     Active Substance: CORTICOTROPIN
     Indication: FOCAL SEGMENTAL GLOMERULOSCLEROSIS
     Dosage: 80 UNITS, TWICE A WEEK
     Route: 030
     Dates: start: 20150420

REACTIONS (2)
  - Abnormal loss of weight [Unknown]
  - Thrombosis [Unknown]

NARRATIVE: CASE EVENT DATE: 20150726
